FAERS Safety Report 24260658 (Version 1)
Quarter: 2024Q3

REPORT INFORMATION
  Report Type: Spontaneous
  Country: US (occurrence: US)
  Receive Date: 20240828
  Receipt Date: 20240828
  Transmission Date: 20241016
  Serious: Yes (Other)
  Sender: RADIUS PHARM
  Company Number: US-RADIUS HEALTH INC.-2024US006394

PATIENT

DRUGS (2)
  1. TYMLOS [Suspect]
     Active Substance: ABALOPARATIDE
     Indication: Osteoporosis
     Dosage: 80 MICROGRAM, QD
     Route: 058
     Dates: start: 20231204
  2. GABAPENTIN [Suspect]
     Active Substance: GABAPENTIN
     Indication: Back pain
     Dosage: 100 MILLIGRAM, BID
     Route: 048

REACTIONS (6)
  - Fracture nonunion [Not Recovered/Not Resolved]
  - Fall [Unknown]
  - Chest pain [Unknown]
  - Drug ineffective [Unknown]
  - Contusion [Unknown]
  - Back pain [Unknown]

NARRATIVE: CASE EVENT DATE: 20240801
